FAERS Safety Report 6071106-9 (Version None)
Quarter: 2009Q1

REPORT INFORMATION
  Report Type: 
  Country: None (occurrence: None)
  Receive Date: 20090209
  Receipt Date: 20090129
  Transmission Date: 20090719
  Serious: Yes (Death, Hospitalization)
  Sender: FDA-Public Use
  Company Number: DE-GILEAD-2008-0019584

PATIENT
  Sex: Female

DRUGS (3)
  1. AMBRISENTAN [Suspect]
     Indication: PULMONARY ARTERIAL HYPERTENSION
     Route: 048
     Dates: start: 20081108
  2. DURAGESIC-100 [Suspect]
     Indication: PAIN
     Route: 062
     Dates: start: 20081201, end: 20081216
  3. TAZOBACTAM [Concomitant]

REACTIONS (4)
  - CARDIOPULMONARY FAILURE [None]
  - PNEUMONIA [None]
  - PULMONARY HYPERTENSION [None]
  - SOMNOLENCE [None]
